FAERS Safety Report 10102042 (Version 1)
Quarter: 2014Q2

REPORT INFORMATION
  Report Type: Spontaneous
  Country: SE (occurrence: SE)
  Receive Date: 20140424
  Receipt Date: 20140424
  Transmission Date: 20141212
  Serious: Yes (Disabling)
  Sender: FDA-Public Use
  Company Number: PHHY2014SE049470

PATIENT
  Age: 71 Year
  Sex: Female

DRUGS (1)
  1. ZOMETA [Suspect]

REACTIONS (1)
  - Osteonecrosis [Not Recovered/Not Resolved]
